FAERS Safety Report 4466388-0 (Version None)
Quarter: 2004Q3

REPORT INFORMATION
  Report Type: 
  Country: None (occurrence: None)
  Receive Date: 20040930
  Receipt Date: 20040915
  Transmission Date: 20050211
  Serious: Yes (Hospitalization)
  Sender: FDA-Public Use
  Company Number: F01200402809

PATIENT
  Age: 68 Year
  Sex: Male
  Weight: 56.3 kg

DRUGS (3)
  1. OXALIPLATIN - SOLUTION - 130 MG/M2 [Suspect]
     Indication: COLORECTAL CANCER
     Dosage: 130 MG/M2 Q3W - INTRAVENOUS NOS
     Route: 042
     Dates: start: 20040823, end: 20040823
  2. CAPECITABINE - TABLET - 850 MG/M2 [Suspect]
     Dosage: 850 MG/M2 TWICE DAILY FROM D1 TO D15, Q3W - ORAL
     Route: 048
     Dates: start: 20040823, end: 20040830
  3. AVASTIN [Suspect]
     Dosage: 7.5 MG/KG OVER 30-90 MINUTES IV INFUSION ON DAY 1, Q3W - INTRAVENOUS NOS
     Route: 042
     Dates: start: 20040823, end: 20040823

REACTIONS (5)
  - HAEMATOCRIT DECREASED [None]
  - HAEMOGLOBIN DECREASED [None]
  - PLATELET COUNT DECREASED [None]
  - POST PROCEDURAL HAEMORRHAGE [None]
  - WHITE BLOOD CELL COUNT DECREASED [None]
